FAERS Safety Report 17440927 (Version 1)
Quarter: 2020Q1

REPORT INFORMATION
  Report Type: Spontaneous
  Country: IT (occurrence: IT)
  Receive Date: 20200220
  Receipt Date: 20200220
  Transmission Date: 20200409
  Serious: Yes (Hospitalization)
  Sender: FDA-Public Use
  Company Number: IT-MYLANLABS-2020M1018928

PATIENT
  Age: 86 Year
  Sex: Female

DRUGS (4)
  1. NIFEDIPINE. [Concomitant]
     Active Substance: NIFEDIPINE
     Indication: HYPERTENSION
     Dosage: FORMULATION: EXTENDED-RELEASE
     Route: 065
  2. METFORMIN HYDROCHLORIDE AND GLIBENCLAMIDE [Concomitant]
     Indication: TYPE 2 DIABETES MELLITUS
     Dosage: 1 DOSAGE FORM, BID
     Route: 065
  3. TICLOPIDINE [Suspect]
     Active Substance: TICLOPIDINE
     Indication: CAROTID ARTERY STENOSIS
     Dosage: 250 MILLIGRAM, BID
     Route: 048
  4. INSULIN [Concomitant]
     Active Substance: INSULIN NOS
     Indication: TYPE 2 DIABETES MELLITUS
     Dosage: 15U/DAY
     Route: 065

REACTIONS (2)
  - Hepatitis cholestatic [Recovered/Resolved]
  - Metabolic disorder [Recovered/Resolved]
